FAERS Safety Report 24589713 (Version 3)
Quarter: 2024Q4

REPORT INFORMATION
  Report Type: Report from Study
  Country: US (occurrence: US)
  Receive Date: 20241107
  Receipt Date: 20241203
  Transmission Date: 20250115
  Serious: Yes (Other)
  Sender: ABBVIE
  Company Number: US-ABBVIE-5989573

PATIENT
  Age: 71 Year
  Sex: Female

DRUGS (1)
  1. SKYRIZI [Suspect]
     Active Substance: RISANKIZUMAB-RZAA
     Indication: Psoriasis
     Route: 058
     Dates: start: 20240319

REACTIONS (12)
  - Intervertebral disc degeneration [Recovering/Resolving]
  - Contusion [Not Recovered/Not Resolved]
  - Road traffic accident [Not Recovered/Not Resolved]
  - Mobility decreased [Unknown]
  - Myalgia [Recovering/Resolving]
  - Cervical spinal stenosis [Recovering/Resolving]
  - Post-traumatic neck syndrome [Recovered/Resolved]
  - Pollakiuria [Unknown]
  - Musculoskeletal stiffness [Recovering/Resolving]
  - Procedural pain [Recovering/Resolving]
  - Contusion [Recovered/Resolved]
  - Gastrointestinal injury [Unknown]

NARRATIVE: CASE EVENT DATE: 20240101
